FAERS Safety Report 9441720 (Version 1)
Quarter: 2013Q3

REPORT INFORMATION
  Report Type: Spontaneous
  Country: CA (occurrence: CA)
  Receive Date: 20130806
  Receipt Date: 20130806
  Transmission Date: 20140515
  Serious: Yes (Hospitalization)
  Sender: FDA-Public Use
  Company Number: CA-ROCHE-1257470

PATIENT
  Age: 58 Year
  Sex: Female

DRUGS (7)
  1. XOLAIR [Suspect]
     Indication: OFF LABEL USE
     Route: 058
     Dates: start: 20111017
  2. SALBUTAMOL [Concomitant]
  3. SPIRIVA [Concomitant]
  4. ADVAIR [Concomitant]
  5. SINGULAIR [Concomitant]
  6. NASONEX [Concomitant]
  7. PREDNISONE [Concomitant]

REACTIONS (1)
  - Bronchitis [Unknown]
